FAERS Safety Report 6857984-1 (Version None)
Quarter: 2010Q3

REPORT INFORMATION
  Report Type: 
  Country: None (occurrence: None)
  Receive Date: 20100715
  Receipt Date: 20100621
  Transmission Date: 20110219
  Serious: Yes (Other)
  Sender: FDA-Public Use
  Company Number: 8044605

PATIENT
  Sex: Female
  Weight: 60.9 kg

DRUGS (2)
  1. CERTOLIZUMAB PEGOL [Suspect]
     Indication: RHEUMATOID ARTHRITIS
  2. LOESTRIN 1.5/30 [Concomitant]

REACTIONS (2)
  - PREGNANCY TEST POSITIVE [None]
  - TREATMENT NONCOMPLIANCE [None]
